FAERS Safety Report 5483324-9 (Version None)
Quarter: 2007Q4

REPORT INFORMATION
  Report Type: 
  Country: None (occurrence: None)
  Receive Date: 20071012
  Receipt Date: 20071009
  Transmission Date: 20080405
  Serious: Yes (Death)
  Sender: FDA-Public Use
  Company Number: PHEH2007US13192

PATIENT
  Age: 70 Year
  Sex: Female

DRUGS (6)
  1. EXFORGE [Suspect]
     Indication: HYPERTENSION
     Dosage: 10/320MG, QD
     Dates: start: 20070823
  2. TOPROL-XL [Concomitant]
     Indication: HYPERTENSION
     Dosage: 50MG, UNK
  3. PRINIVIL [Concomitant]
     Indication: HYPERTENSION
     Dosage: 20MG, UNK
  4. HYDROCHLOROTHIAZIDE [Concomitant]
     Dosage: 25MG, UNK
  5. CRESTOR [Concomitant]
     Dosage: 10MG, UNK
  6. ASPIRIN [Concomitant]
     Dosage: UNK, UNK

REACTIONS (1)
  - MYOCARDIAL INFARCTION [None]
